FAERS Safety Report 7432657-5 (Version None)
Quarter: 2011Q2

REPORT INFORMATION
  Report Type: 
  Country: None (occurrence: None)
  Receive Date: 20110422
  Receipt Date: 20110413
  Transmission Date: 20111010
  Serious: Yes (Other)
  Sender: FDA-Public Use
  Company Number: FR-ROCHE-738667

PATIENT
  Sex: Female

DRUGS (4)
  1. CAPECITABINE [Suspect]
     Indication: BREAST CANCER
     Dosage: LAST DOSE PRIOR TO SAE: 29 OCTOBER 2010.
     Route: 065
     Dates: start: 20100628
  2. BEVACIZUMAB [Suspect]
     Indication: BREAST CANCER
     Dosage: LAST DOSE PRIOR TO SAE: 25 OCTOBER 2010.
     Route: 065
     Dates: start: 20100628
  3. PACLITAXEL [Suspect]
     Dosage: PERMANENTLY DISCONTINUED
     Route: 065
     Dates: start: 20101122, end: 20101201
  4. PACLITAXEL [Suspect]
     Indication: BREAST CANCER
     Dosage: TEMPORARILY INTERRUPTED.
     Route: 065
     Dates: start: 20100628, end: 20101102

REACTIONS (1)
  - ONYCHOLYSIS [None]
